FAERS Safety Report 23943531 (Version 1)
Quarter: 2024Q2

REPORT INFORMATION
  Report Type: Spontaneous
  Country: US (occurrence: US)
  Receive Date: 20240606
  Receipt Date: 20240606
  Transmission Date: 20240716
  Serious: Yes (Other)
  Sender: FDA-Public Use
  Company Number: US-AVET LIFESCIENCES LTD-2024-AVET-000196

PATIENT
  Age: 42 Year
  Sex: Female

DRUGS (11)
  1. METHIMAZOLE [Suspect]
     Active Substance: METHIMAZOLE
     Indication: Graves^ disease
     Dosage: 0.01~MILLIGRAM, QD, CONCENTRATION/TABLET: 0.01 MG/ML; AMOUNT: 1 ML; 1-3 DAYS (DISSOLVING 10-MG TABLE
  2. METHIMAZOLE [Suspect]
     Active Substance: METHIMAZOLE
     Indication: Immune tolerance induction
     Dosage: 0.02 MILLIGRAM, QD, CONCENTRATION/TABLET: 0.01 MG/ML; AMOUNT: 2 ML; 4-6 DAYS (DISSOLVING 10-MG TABLE
  3. METHIMAZOLE [Suspect]
     Active Substance: METHIMAZOLE
     Dosage: 0.04 MILLIGRAM, QD, CONCENTRATION/TABLET: 0.01 MG/ML; AMOUNT: 4 ML; 7-9 DAYS(DISSOLVING 10-MG TABLET
  4. METHIMAZOLE [Suspect]
     Active Substance: METHIMAZOLE
     Dosage: 0.1 MILLIGRAM, QD, CONCENTRATION/TABLET: 0.1 MG/ML; AMOUNT: 1 ML; 10-12 DAYS (DISSOLVING 10-MG TABLE
  5. METHIMAZOLE [Suspect]
     Active Substance: METHIMAZOLE
     Dosage: 0.2 MILLIGRAM, QD, CONCENTRATION/TABLET: 0.1 MG/ML; AMOUNT: 2 ML; 13-15 DAYS (DISSOLVING 10-MG TABLE
  6. METHIMAZOLE [Suspect]
     Active Substance: METHIMAZOLE
     Dosage: 1 MILLIGRAM, QD, CONCENTRATION/TABLET: 0.1 MG/ML; AMOUNT: 10 ML; 16-18 DAYS (DISSOLVING 10-MG TABLET
  7. METHIMAZOLE [Suspect]
     Active Substance: METHIMAZOLE
     Dosage: 2 MILLIGRAM, QD, CONCENTRATION/TABLET: 0.1 MG/ML; AMOUNT: 20 ML; 19-21 DAYS (DISSOLVING 10-MG TABLET
  8. METHIMAZOLE [Suspect]
     Active Substance: METHIMAZOLE
     Dosage: 5 MILLIGRAM, QD, CONCENTRATION/TABLET: 10-MG TABLET; AMOUNT: 0.5 TABLET DAILY; 22-24 DAYS
  9. METHIMAZOLE [Suspect]
     Active Substance: METHIMAZOLE
     Dosage: 10 MILLIGRAM, QD, CONCENTRATION/TABLET: 10-MG TABLET; AMOUNT: 1 TABLET DAILY; 25-27 DAYS
  10. METHIMAZOLE [Suspect]
     Active Substance: METHIMAZOLE
     Dosage: 20 MILLIGRAM, QD, CONCENTRATION/TABLET: 10-MG TABLET; AMOUNT: 1 TABLET TWICE DAILY; ?28 DAYS
  11. METHIMAZOLE [Suspect]
     Active Substance: METHIMAZOLE
     Dosage: THREE MONTHS AFTER, 15 MG DAILY

REACTIONS (1)
  - Type IV hypersensitivity reaction [Recovered/Resolved]
